FAERS Safety Report 8598335-4 (Version None)
Quarter: 2012Q3

REPORT INFORMATION
  Report Type: 
  Country: None (occurrence: None)
  Receive Date: 20120816
  Receipt Date: 20120808
  Transmission Date: 20120928
  Serious: Yes (Hospitalization, Other)
  Sender: FDA-Public Use
  Company Number: IL-JNJFOC-20120807282

PATIENT
  Age: 80 Year
  Sex: Male

DRUGS (10)
  1. DABIGATRAN [Concomitant]
     Dosage: THROUGH GASTRIC TUBE
     Dates: start: 20120616, end: 20120627
  2. OMEPRAZOLE (PRISOLEC) [Concomitant]
  3. CARBIDOPA [Concomitant]
     Dosage: DOSE = 1/2 TABLET 3 TIMES A DAY
  4. LEVODOPA [Concomitant]
     Dosage: DOSE REPORTED AS 1/2 TABLET 3 TIMES A DAY
  5. WARFARIN SODIUM [Concomitant]
     Indication: CEREBROVASCULAR ACCIDENT
     Dates: start: 20120601
  6. XARELTO [Suspect]
     Indication: CEREBROVASCULAR ACCIDENT PROPHYLAXIS
     Dosage: ROUTE REPORTED AS THROUGH GASTRIC TUBE
     Route: 048
     Dates: start: 20120627, end: 20120705
  7. BISOPROLOL FUMARATE [Concomitant]
  8. XARELTO [Suspect]
     Indication: ATRIAL FIBRILLATION
     Dosage: ROUTE REPORTED AS THROUGH GASTRIC TUBE
     Route: 048
     Dates: start: 20120627, end: 20120705
  9. ALFUZOSIN HYDROCHLORIDE [Concomitant]
  10. PLAVIX [Concomitant]

REACTIONS (1)
  - DEEP VEIN THROMBOSIS [None]
